FAERS Safety Report 10991563 (Version 1)
Quarter: 2015Q2

REPORT INFORMATION
  Report Type: Spontaneous
  Country: US (occurrence: US)
  Receive Date: 20150406
  Receipt Date: 20150406
  Transmission Date: 20150821
  Serious: Yes (Other)
  Sender: FDA-Public Use
  Company Number: US-009507513-1504USA002444

PATIENT
  Sex: Male

DRUGS (1)
  1. DR. SCHOLL^S ODOR-X [Suspect]
     Active Substance: ZINC OXIDE
     Indication: PRODUCT USED FOR UNKNOWN INDICATION
     Dosage: UNK, UNKNOWN
     Route: 061

REACTIONS (5)
  - Pain [Unknown]
  - Skin ulcer [Unknown]
  - Hypoaesthesia [Unknown]
  - Mental impairment [Unknown]
  - Cerebrovascular accident [Unknown]
